FAERS Safety Report 5773993-8 (Version None)
Quarter: 2008Q2

REPORT INFORMATION
  Report Type: 
  Country: None (occurrence: None)
  Receive Date: 20080616
  Receipt Date: 20080604
  Transmission Date: 20081010
  Serious: Yes (Hospitalization)
  Sender: FDA-Public Use
  Company Number: DE-ROCHE-552077

PATIENT
  Sex: Male
  Weight: 59 kg

DRUGS (11)
  1. CAPECITABINE [Suspect]
     Indication: METASTATIC GASTRIC CANCER
     Dosage: FREQUENCY: DAY 1 - DAY 15
     Route: 048
     Dates: start: 20080220
  2. TAXOTERE [Suspect]
     Indication: METASTATIC GASTRIC CANCER
     Dosage: FREQUENCY REPORTED AS DAY 1 AND DAY 8, WDH D22. DOSAGE FORM INFUSION.
     Route: 042
     Dates: start: 20080220
  3. TAXOTERE [Suspect]
     Dosage: FREQUENCY REPORTED AS DAY 1 AND DAY 8, WDH D22
     Route: 042
     Dates: start: 20080422
  4. OXALIPLATIN [Suspect]
     Indication: METASTATIC GASTRIC CANCER
     Dosage: FREQUENCY DAY 1 AND DAY 8, WDH D22. DOSAGE FORM INFUSION.
     Route: 042
     Dates: start: 20080220
  5. OXALIPLATIN [Suspect]
     Dosage: FREQUENCY REPORTED AS DAY 1 AND DAY 8, WDH D22.
     Route: 042
     Dates: start: 20080422
  6. ASPIRIN [Concomitant]
  7. ERYFER [Concomitant]
     Dosage: TDD 1 X TGL.
  8. VITAMIN B-12 [Concomitant]
     Dosage: TDD 4 WOENTLICH.
  9. METOCLOPRAMIDE HYDROCHLORIDE [Concomitant]
     Dates: start: 20080220
  10. IMODIUM [Concomitant]
     Dates: start: 20080226
  11. NOVALGIN [Concomitant]
     Dates: start: 20080304

REACTIONS (1)
  - GENERAL PHYSICAL HEALTH DETERIORATION [None]
